FAERS Safety Report 8421379-X (Version None)
Quarter: 2012Q2

REPORT INFORMATION
  Report Type: 
  Country: None (occurrence: None)
  Receive Date: 20120608
  Receipt Date: 20120605
  Transmission Date: 20120825
  Serious: Yes (Death, Hospitalization)
  Sender: FDA-Public Use
  Company Number: PHHY2009JP19506

PATIENT
  Sex: Male
  Weight: 48 kg

DRUGS (8)
  1. TAGAMET [Concomitant]
     Dosage: 400 MG
     Route: 042
     Dates: start: 20090420, end: 20090429
  2. VFEND [Concomitant]
     Dosage: 400 MG
     Route: 042
     Dates: start: 20090425, end: 20090429
  3. MAXIPIME [Concomitant]
     Dosage: 4 G
     Route: 042
     Dates: start: 20090404, end: 20090413
  4. ITRACONAZOLE [Concomitant]
     Dosage: 200 MG
     Route: 042
     Dates: start: 20090416, end: 20090424
  5. MEROPENEM [Concomitant]
     Dosage: 1 G
     Route: 042
     Dates: start: 20090417, end: 20090422
  6. EXJADE [Suspect]
     Indication: ACUTE MYELOID LEUKAEMIA
  7. CIPROFLOXACIN [Concomitant]
     Dosage: 600 MG
     Route: 042
     Dates: start: 20090414, end: 20090417
  8. EXJADE [Suspect]
     Indication: IRON OVERLOAD
     Dosage: 1000 MG, DAILY
     Route: 048
     Dates: start: 20081107, end: 20090326

REACTIONS (11)
  - RENAL IMPAIRMENT [None]
  - PANCYTOPENIA [None]
  - ALANINE AMINOTRANSFERASE INCREASED [None]
  - INFECTION [None]
  - HEPATIC FUNCTION ABNORMAL [None]
  - NAUSEA [None]
  - ASPARTATE AMINOTRANSFERASE INCREASED [None]
  - NEOPLASM MALIGNANT [None]
  - AMYLASE INCREASED [None]
  - BLOOD CREATININE INCREASED [None]
  - NEOPLASM PROGRESSION [None]
